FAERS Safety Report 7720389-5 (Version None)
Quarter: 2011Q3

REPORT INFORMATION
  Report Type: 
  Country: None (occurrence: None)
  Receive Date: 20110825
  Receipt Date: 20110818
  Transmission Date: 20111222
  Serious: Yes (Other)
  Sender: FDA-Public Use
  Company Number: TPA2011A04849

PATIENT
  Age: 64 Year
  Sex: Male
  Weight: 152.8622 kg

DRUGS (11)
  1. IBUPROFEN [Concomitant]
  2. GLUCOSAMINE SULFATE SODIUM CL (GLUCOSAMINE SULFATE SODIUM CHLORIDE) [Concomitant]
  3. SIMVASTATIN [Concomitant]
  4. FEXOFENADINE HCL (FEXOFENADINE HYDROCHLORIDE) [Concomitant]
  5. ZOVIRAX [Concomitant]
  6. JANUVIA [Concomitant]
  7. FENOFIBRATE [Concomitant]
  8. FOLIC ACID [Concomitant]
  9. ASPIRIN [Concomitant]
  10. ACTOPLUS MET [Suspect]
     Indication: TYPE 2 DIABETES MELLITUS
     Dosage: 15/850MG, 2 IN 1 D, PER ORAL
     Route: 048
     Dates: start: 20100101
  11. NORVASC [Concomitant]

REACTIONS (1)
  - BLADDER CANCER [None]
